FAERS Safety Report 9724477 (Version 2)
Quarter: 2013Q4

REPORT INFORMATION
  Report Type: Spontaneous
  Country: US (occurrence: US)
  Receive Date: 20131202
  Receipt Date: 20131220
  Transmission Date: 20140711
  Serious: Yes (Hospitalization, Other)
  Sender: FDA-Public Use
  Company Number: US-AMGEN-USASP2013082742

PATIENT
  Age: 56 Year
  Sex: Male

DRUGS (7)
  1. ENBREL [Suspect]
     Indication: PSORIASIS
     Dosage: 50 MG, 2 TIMES/WK
     Route: 065
     Dates: start: 20041108, end: 20131001
  2. PROPANOLOL                         /00030001/ [Concomitant]
     Indication: MIGRAINE
     Dosage: UNK
  3. AMITRIPTYLINE [Concomitant]
     Indication: MIGRAINE
     Dosage: UNK
  4. TREXIMET [Concomitant]
     Indication: MIGRAINE
     Dosage: UNK
  5. ATORVASTATIN [Concomitant]
     Indication: BLOOD CHOLESTEROL
     Dosage: UNK
  6. OMEPRAZOLE [Concomitant]
     Dosage: UNK
  7. TEMOVATE [Concomitant]
     Indication: PSORIASIS
     Dosage: UNK

REACTIONS (2)
  - Multiple sclerosis [Not Recovered/Not Resolved]
  - Rosacea [Unknown]
